FAERS Safety Report 10156548 (Version 1)
Quarter: 2014Q2

REPORT INFORMATION
  Report Type: Spontaneous
  Country: FR (occurrence: FR)
  Receive Date: 20140507
  Receipt Date: 20140507
  Transmission Date: 20141212
  Serious: Yes (Hospitalization)
  Sender: FDA-Public Use
  Company Number: FR-ROCHE-1393135

PATIENT
  Age: 40 Year
  Sex: Female

DRUGS (1)
  1. XOLAIR [Suspect]
     Indication: ASTHMA
     Route: 065

REACTIONS (8)
  - Asthma [Unknown]
  - Agitation [Unknown]
  - Restlessness [Unknown]
  - Claustrophobia [Unknown]
  - Mood swings [Unknown]
  - Middle insomnia [Unknown]
  - Headache [Unknown]
  - Dizziness [Unknown]
